FAERS Safety Report 7206281-3 (Version None)
Quarter: 2011Q1

REPORT INFORMATION
  Report Type: 
  Country: None (occurrence: None)
  Receive Date: 20110103
  Receipt Date: 20101223
  Transmission Date: 20110831
  Serious: Yes (Other)
  Sender: FDA-Public Use
  Company Number: PHHO2010PL19224

PATIENT
  Sex: Female
  Weight: 70 kg

DRUGS (8)
  1. CONCOR COR [Concomitant]
     Indication: HYPERTENSION
     Dosage: UNK
     Dates: start: 20080629
  2. STILNOX [Concomitant]
     Indication: SLEEP DISORDER
     Dosage: UNK
     Dates: start: 20101213
  3. SIRDALUD [Concomitant]
     Indication: TRICHOTILLOMANIA
     Dosage: UNK
     Dates: start: 20091215
  4. FTY 720 [Suspect]
     Dosage: 0.5 MG, QD
     Route: 048
     Dates: start: 20100319, end: 20101215
  5. FTY 720 [Suspect]
     Indication: MULTIPLE SCLEROSIS
     Dosage: DOSE BLINDED
     Route: 048
     Dates: start: 20081216, end: 20100318
  6. OXYBUTYNIN [Concomitant]
     Indication: BLADDER DYSFUNCTION
     Dosage: UNK
     Dates: start: 20091214, end: 20100915
  7. TIZANIDINE HCL [Concomitant]
     Indication: MUSCLE SPASMS
     Dosage: UNK
     Dates: start: 20100903, end: 20101002
  8. CLINDAMYCIN [Concomitant]
     Indication: PERIODONTITIS
     Dosage: UNK
     Dates: start: 20090314, end: 20090315

REACTIONS (2)
  - BASAL CELL CARCINOMA [None]
  - SKIN LESION EXCISION [None]
